FAERS Safety Report 4971773-4 (Version None)
Quarter: 2006Q2

REPORT INFORMATION
  Report Type: 
  Country: None (occurrence: None)
  Receive Date: 20060413
  Receipt Date: 20060330
  Transmission Date: 20061013
  Serious: Yes (Hospitalization)
  Sender: FDA-Public Use
  Company Number: US-AMGEN-US174697

PATIENT
  Sex: Male

DRUGS (2)
  1. PROCRIT [Suspect]
     Indication: ANAEMIA
     Dates: start: 20060201
  2. HYDROXYUREA [Concomitant]
     Dates: end: 20060201

REACTIONS (8)
  - BLOOD URINE PRESENT [None]
  - FACE OEDEMA [None]
  - GROIN PAIN [None]
  - HYPOKINESIA [None]
  - INFLAMMATION [None]
  - LYMPHADENOPATHY [None]
  - OEDEMA PERIPHERAL [None]
  - SHOULDER PAIN [None]
